FAERS Safety Report 5313543-3 (Version None)
Quarter: 2007Q2

REPORT INFORMATION
  Report Type: 
  Country: None (occurrence: None)
  Receive Date: 20070501
  Receipt Date: 20070314
  Transmission Date: 20071010
  Serious: No
  Sender: FDA-Public Use
  Company Number: 2007UW02315

PATIENT
  Age: 7460 Day
  Sex: Male
  Weight: 123.6 kg

DRUGS (3)
  1. ENTOCORT EC [Suspect]
     Indication: CROHN'S DISEASE
     Route: 048
     Dates: start: 20070124, end: 20070129
  2. AZATHIOPRINE [Concomitant]
  3. REMICADE [Concomitant]
     Indication: CROHN'S DISEASE
     Route: 042
     Dates: start: 20060301

REACTIONS (1)
  - RASH MACULAR [None]
